FAERS Safety Report 4822896-1 (Version None)
Quarter: 2005Q4

REPORT INFORMATION
  Report Type: 
  Country: None (occurrence: None)
  Receive Date: 20051104
  Receipt Date: 20051024
  Transmission Date: 20060501
  Serious: Yes (Hospitalization)
  Sender: FDA-Public Use
  Company Number: APP200500468

PATIENT
  Age: 74 Year
  Sex: Male
  Weight: 74.8435 kg

DRUGS (5)
  1. FLUOROURACIL INJ [Suspect]
     Indication: COLON CANCER METASTATIC
     Dosage: SEE IMAGE
     Route: 042
     Dates: start: 20050928, end: 20050928
  2. FLUOROURACIL INJ [Suspect]
     Indication: COLON CANCER METASTATIC
     Dosage: SEE IMAGE
     Route: 042
     Dates: start: 20050928, end: 20050928
  3. OXALIPLATIN [Concomitant]
  4. AVASTIN [Concomitant]
  5. PANITUMUMAB [Concomitant]

REACTIONS (13)
  - ASTHENIA [None]
  - CEREBRAL ISCHAEMIA [None]
  - CEREBROVASCULAR ACCIDENT [None]
  - CHEST DISCOMFORT [None]
  - COLON CANCER METASTATIC [None]
  - DISEASE PROGRESSION [None]
  - DYSPNOEA [None]
  - GRAND MAL CONVULSION [None]
  - HYPOAESTHESIA [None]
  - HYPOTONIA [None]
  - INCREASED UPPER AIRWAY SECRETION [None]
  - MENTAL STATUS CHANGES [None]
  - TRANSIENT ISCHAEMIC ATTACK [None]
